FAERS Safety Report 9260476 (Version 1)
Quarter: 2013Q2

REPORT INFORMATION
  Report Type: Report from Study
  Country: CA (occurrence: CA)
  Receive Date: 20130429
  Receipt Date: 20130429
  Transmission Date: 20140414
  Serious: Yes (Other)
  Sender: FDA-Public Use
  Company Number: CA-JNJFOC-20130411916

PATIENT
  Age: 57 Year
  Sex: Female
  Weight: 73 kg

DRUGS (8)
  1. REMICADE [Suspect]
     Indication: CROHN^S DISEASE
     Route: 042
     Dates: start: 20130418
  2. REMICADE [Suspect]
     Indication: CROHN^S DISEASE
     Route: 042
     Dates: start: 20121127
  3. LOSEC [Concomitant]
     Indication: GASTROOESOPHAGEAL REFLUX DISEASE
     Route: 065
  4. PENTASA [Concomitant]
     Indication: CROHN^S DISEASE
     Route: 065
  5. CALTRATE [Concomitant]
     Indication: BONE DISORDER
     Route: 065
  6. IRON [Concomitant]
     Indication: HAEMOGLOBIN DECREASED
     Route: 065
  7. TRAZODONE [Concomitant]
     Route: 065
  8. SOLUCORTEF [Concomitant]
     Indication: PREMEDICATION
     Route: 042

REACTIONS (3)
  - Pneumonia [Recovered/Resolved]
  - Haemorrhage [Unknown]
  - Pain [Not Recovered/Not Resolved]
